FAERS Safety Report 4846423-8 (Version None)
Quarter: 2005Q4

REPORT INFORMATION
  Report Type: 
  Country: None (occurrence: None)
  Receive Date: 20051128
  Receipt Date: 20050531
  Transmission Date: 20060501
  Serious: Yes (Other)
  Sender: FDA-Public Use
  Company Number: 2005BH000098

PATIENT
  Age: 27 Year
  Sex: Female

DRUGS (1)
  1. SANDOGLOBULIN [Suspect]
     Indication: MYASTHENIA GRAVIS
     Dosage: 400 MG/KG

REACTIONS (1)
  - CEREBROVASCULAR ACCIDENT [None]
